FAERS Safety Report 10786935 (Version 1)
Quarter: 2015Q1

REPORT INFORMATION
  Report Type: Spontaneous
  Country: NL (occurrence: NL)
  Receive Date: 20150211
  Receipt Date: 20150211
  Transmission Date: 20150721
  Serious: Yes (Other)
  Sender: FDA-Public Use
  Company Number: NL-ACORDA-ACO_108963_2015

PATIENT
  Sex: Female

DRUGS (2)
  1. QUTENZA [Suspect]
     Active Substance: CAPSAICIN
     Indication: OFF LABEL USE
  2. QUTENZA [Suspect]
     Active Substance: CAPSAICIN
     Indication: CARPAL TUNNEL SYNDROME
     Dosage: [CUTANEOUS PATCH]
     Route: 062
     Dates: start: 20131231, end: 20131231

REACTIONS (3)
  - Complex regional pain syndrome [Unknown]
  - Drug ineffective [Unknown]
  - Off label use [Recovered/Resolved]

NARRATIVE: CASE EVENT DATE: 20131231
